FAERS Safety Report 6522969-1 (Version None)
Quarter: 2009Q4

REPORT INFORMATION
  Report Type: 
  Country: None (occurrence: None)
  Receive Date: 20091230
  Receipt Date: 20091217
  Transmission Date: 20100525
  Serious: Yes (Hospitalization)
  Sender: FDA-Public Use
  Company Number: SE-WATSON-2009-10989

PATIENT
  Sex: Female

DRUGS (2)
  1. CIPROFLOXACIN HCL [Suspect]
     Indication: URINARY TRACT INFECTION
     Dosage: 750 MG, BID
     Route: 065
  2. METHADONE [Suspect]
     Indication: PAIN
     Dosage: USED 6 YEARS

REACTIONS (3)
  - CONFUSIONAL STATE [None]
  - DRUG INTERACTION [None]
  - FATIGUE [None]
